FAERS Safety Report 10101644 (Version 1)
Quarter: 2014Q2

REPORT INFORMATION
  Report Type: Spontaneous
  Country: CA (occurrence: None)
  Receive Date: 20140422
  Receipt Date: 20140422
  Transmission Date: 20141212
  Serious: Yes (Hospitalization)
  Sender: FDA-Public Use
  Company Number: IMP_07560_2014

PATIENT
  Age: 48 Year
  Sex: Female

DRUGS (6)
  1. CLONIDINE (CLONIDINE) [Suspect]
     Indication: PRODUCT USED FOR UNKNOWN INDICATION
     Dosage: (2.8 MG, ONCE [NOT THE PRESCRIBED AMOUNT])
  2. PROPRANOLOL (PROPRANOLOL) [Suspect]
     Indication: PRODUCT USED FOR UNKNOWN INDICATION
     Dosage: (1120 MG, ONCE [NOT THE PRESCRIBED AMOUNT])
  3. ESCITALOPRAM (ESCITALOPRAM) [Suspect]
     Indication: PRODUCT USED FOR UNKNOWN INDICATION
     Dosage: (400 MG, ONCE [NOT THE PRESCRIBED AMOUNT])
  4. LORAZEPAM (LORAZEPAM) [Suspect]
     Indication: PRODUCT USED FOR UNKNOWN INDICATION
     Dosage: 928 MG, ONCE [NOT THE PRESCRIBED AMOUNT])
  5. ATORVASTATINE /01326101/ (ATORVASTATINE) (NOT SPECIFIED) [Suspect]
     Indication: PRODUCT USED FOR UNKNOWN INDICATION
     Dosage: (560 MG, ONCE [NOT THE PRESCRIBED AMOUNT])
  6. QUETIAPINE (QUETIAPINE) [Suspect]
     Indication: PRODUCT USED FOR UNKNOWN INDICATION
     Dosage: (5600 MG, ONCE [NOT THE PRESCRIBED AMOUNT])

REACTIONS (6)
  - Overdose [None]
  - Coma scale abnormal [None]
  - Blood pH decreased [None]
  - Toxicity to various agents [None]
  - Blood pressure systolic decreased [None]
  - Blood glucose increased [None]
